FAERS Safety Report 9318032 (Version 1)
Quarter: 2013Q2

REPORT INFORMATION
  Report Type: Report from Study
  Country: IE (occurrence: IE)
  Receive Date: 20130530
  Receipt Date: 20130530
  Transmission Date: 20140414
  Serious: Yes (Other)
  Sender: FDA-Public Use
  Company Number: PHHY2013IE045292

PATIENT
  Sex: Female

DRUGS (5)
  1. GILENYA [Suspect]
     Indication: RELAPSING-REMITTING MULTIPLE SCLEROSIS
     Dosage: 0.5 MG, QD
     Route: 048
     Dates: start: 20130423
  2. PONSTAN [Concomitant]
     Dosage: 250 MG, BID
     Route: 048
  3. PARACETAMOL [Concomitant]
     Dosage: 1 G, QD
     Route: 048
  4. PREDNISOLONE [Concomitant]
     Dosage: 20 MG, UNK
     Route: 048
     Dates: start: 20130426
  5. OMEPRAZOLE [Concomitant]
     Dosage: 20 MG, DAILY
     Route: 048
     Dates: start: 20130426

REACTIONS (3)
  - Rheumatoid arthritis [Recovering/Resolving]
  - Arthralgia [Recovering/Resolving]
  - Back pain [Recovering/Resolving]
